FAERS Safety Report 14685750 (Version 1)
Quarter: 2018Q1

REPORT INFORMATION
  Report Type: Spontaneous
  Country: CZ (occurrence: CZ)
  Receive Date: 20180327
  Receipt Date: 20180327
  Transmission Date: 20180509
  Serious: Yes (Other)
  Sender: FDA-Public Use
  Company Number: CZ-MYLANLABS-2018M1020755

PATIENT
  Age: 64 Year
  Sex: Female
  Weight: 51 kg

DRUGS (1)
  1. PREDNISONE. [Suspect]
     Active Substance: PREDNISONE
     Indication: PSORIATIC ARTHROPATHY
     Dosage: CONTINUED FOR ANOTHER 20 YEARS
     Route: 065
     Dates: start: 1992

REACTIONS (4)
  - Osteonecrosis [Unknown]
  - Osteoporosis [Unknown]
  - Spinal pain [Unknown]
  - Spinal compression fracture [Unknown]
